FAERS Safety Report 6183604-8 (Version None)
Quarter: 2009Q2

REPORT INFORMATION
  Report Type: 
  Country: None (occurrence: None)
  Receive Date: 20090508
  Receipt Date: 20090427
  Transmission Date: 20091009
  Serious: Yes (Death, Hospitalization)
  Sender: FDA-Public Use
  Company Number: BE-PFIZER INC-2009197716

PATIENT
  Age: 65 Year

DRUGS (7)
  1. SUNITINIB MALATE [Suspect]
     Indication: OESOPHAGEAL CARCINOMA
     Dosage: 50 MG, 1X/DAY
     Route: 048
     Dates: start: 20090223, end: 20090315
  2. MORPHINE [Concomitant]
     Dosage: UNK
     Route: 058
     Dates: start: 20090411, end: 20090413
  3. MAXIPIME [Concomitant]
     Dosage: UNK
     Route: 042
     Dates: start: 20090409, end: 20090413
  4. LYSOMUCIL [Concomitant]
     Dosage: UNK
     Dates: start: 20090409, end: 20090413
  5. DURAGESIC-100 [Concomitant]
     Dosage: UNK
     Route: 003
     Dates: start: 20090409, end: 20090412
  6. COMBIVENT [Concomitant]
     Dosage: UNK
     Dates: start: 20090408, end: 20090413
  7. PARACETAMOL [Suspect]
     Dosage: UNK
     Route: 042
     Dates: start: 20090408, end: 20090413

REACTIONS (7)
  - ANOREXIA [None]
  - ASTHENIA [None]
  - MALIGNANT NEOPLASM PROGRESSION [None]
  - NAUSEA [None]
  - OESOPHAGEAL CARCINOMA [None]
  - PNEUMONIA [None]
  - PNEUMONIA ASPIRATION [None]
